FAERS Safety Report 5563531-7 (Version None)
Quarter: 2007Q4

REPORT INFORMATION
  Report Type: 
  Country: None (occurrence: None)
  Receive Date: 20071217
  Receipt Date: 20070830
  Transmission Date: 20080405
  Serious: Yes (Life-Threatening, Hospitalization)
  Sender: FDA-Public Use
  Company Number: US-ASTRAZENECA-2007UW13555

PATIENT
  Age: 56 Year
  Sex: Male
  Weight: 95.3 kg

DRUGS (4)
  1. CRESTOR [Suspect]
     Indication: BLOOD CHOLESTEROL INCREASED
     Route: 048
     Dates: start: 20070201, end: 20070101
  2. CRESTOR [Suspect]
     Route: 048
     Dates: start: 20070601, end: 20070605
  3. PROTONIX [Concomitant]
     Indication: GASTROOESOPHAGEAL REFLUX DISEASE
  4. VASOTEC [Concomitant]
     Indication: BLOOD PRESSURE INCREASED

REACTIONS (4)
  - BURNING SENSATION [None]
  - CHROMATURIA [None]
  - HEADACHE [None]
  - RHABDOMYOLYSIS [None]
